FAERS Safety Report 18510374 (Version 1)
Quarter: 2020Q4

REPORT INFORMATION
  Report Type: Spontaneous
  Country: US (occurrence: US)
  Receive Date: 20201116
  Receipt Date: 20201116
  Transmission Date: 20210114
  Serious: No
  Sender: FDA-Public Use
  Company Number: None

PATIENT
  Age: 78 Year
  Sex: Female
  Weight: 66.29 kg

DRUGS (22)
  1. AMLODIPINE BESYLATE. [Concomitant]
     Active Substance: AMLODIPINE BESYLATE
  2. VENTOLIN HFA [Concomitant]
     Active Substance: ALBUTEROL SULFATE
  3. VITAMIN D [Concomitant]
     Active Substance: VITAMIN D NOS
  4. PROZAC [Concomitant]
     Active Substance: FLUOXETINE HYDROCHLORIDE
  5. CAPECITABINE. [Suspect]
     Active Substance: CAPECITABINE
     Indication: BREAST CANCER FEMALE
     Route: 048
     Dates: start: 20200716, end: 20201116
  6. MELATONIN [Concomitant]
     Active Substance: MELATONIN
  7. COSOPT [Concomitant]
     Active Substance: DORZOLAMIDE HYDROCHLORIDE\TIMOLOL MALEATE
  8. FLOVENT HFA [Concomitant]
     Active Substance: FLUTICASONE PROPIONATE
  9. LOPERAMIDE HCL [Concomitant]
     Active Substance: LOPERAMIDE HYDROCHLORIDE
  10. LEXAPRO [Concomitant]
     Active Substance: ESCITALOPRAM OXALATE
  11. LOSARTAN POTASSIUM. [Concomitant]
     Active Substance: LOSARTAN POTASSIUM
  12. CRANBERRY CONCENTRATE [Concomitant]
     Active Substance: CRANBERRY CONCENTRATE
  13. PERCOCET [Concomitant]
     Active Substance: ACETAMINOPHEN\OXYCODONE HYDROCHLORIDE
  14. COLACE [Concomitant]
     Active Substance: DOCUSATE SODIUM
  15. VITAMIN B COMPLEX [Concomitant]
     Active Substance: CYANOCOBALAMIN\DEXPANTHENOL\NIACINAMIDE\PYRIDOXINE HYDROCHLORIDE\RIBOFLAVIN 5^-PHOSPHATE SODIUM\THIAMINE HYDROCHLORIDE\VITAMIN B COMPLEX
  16. COMBIGAN [Concomitant]
     Active Substance: BRIMONIDINE TARTRATE\TIMOLOL MALEATE
  17. ASPIRIN ADULT LOW STRENGTH [Concomitant]
     Active Substance: ASPIRIN
  18. VITAMIN C [Concomitant]
     Active Substance: ASCORBIC ACID
  19. ATORVASTATIN CALCIUM. [Concomitant]
     Active Substance: ATORVASTATIN CALCIUM
  20. TRAVATAN Z [Concomitant]
     Active Substance: TRAVOPROST
  21. ALPRAZOLAM. [Concomitant]
     Active Substance: ALPRAZOLAM
  22. DEXAMETHASONE. [Concomitant]
     Active Substance: DEXAMETHASONE

REACTIONS (1)
  - Disease progression [None]

NARRATIVE: CASE EVENT DATE: 20201116
